FAERS Safety Report 9977297 (Version 1)
Quarter: 2014Q1

REPORT INFORMATION
  Report Type: Spontaneous
  Country: US (occurrence: US)
  Receive Date: 20140306
  Receipt Date: 20140306
  Transmission Date: 20141002
  Serious: No
  Sender: FDA-Public Use
  Company Number: US-ABBVIE-13P-163-1165093-00

PATIENT
  Sex: Female
  Weight: 79.45 kg

DRUGS (10)
  1. HUMIRA [Suspect]
     Indication: CROHN^S DISEASE
     Dates: start: 2010
  2. NEXIUM [Concomitant]
     Indication: GASTROOESOPHAGEAL REFLUX DISEASE
  3. PAXIL [Concomitant]
     Indication: DEPRESSION
  4. DELZICOL [Concomitant]
     Indication: CROHN^S DISEASE
  5. XANAX [Concomitant]
     Indication: ANXIETY
  6. LEVOTHYROXINE [Concomitant]
     Indication: THYROID DISORDER
  7. HYDROCODONE/ACETAMINOPHEN [Concomitant]
     Indication: PRODUCT USED FOR UNKNOWN INDICATION
  8. CALCIUM [Concomitant]
     Indication: VITAMIN SUPPLEMENTATION
  9. FISH OIL [Concomitant]
     Indication: VITAMIN SUPPLEMENTATION
  10. ADVAIR [Concomitant]
     Indication: CHRONIC OBSTRUCTIVE PULMONARY DISEASE

REACTIONS (1)
  - Injection site pain [Recovered/Resolved]
